FAERS Safety Report 9645624 (Version 1)
Quarter: 2013Q4

REPORT INFORMATION
  Report Type: Spontaneous
  Country: IT (occurrence: IT)
  Receive Date: 20131025
  Receipt Date: 20131025
  Transmission Date: 20140711
  Serious: Yes (Other)
  Sender: FDA-Public Use
  Company Number: IT-PFIZER INC-2013303987

PATIENT
  Age: 69 Year
  Sex: Male

DRUGS (1)
  1. ATORVASTATINA PFIZER [Suspect]
     Dosage: 10 MG, UNK

REACTIONS (1)
  - Road traffic accident [Unknown]
